FAERS Safety Report 8170135-9 (Version None)
Quarter: 2012Q1

REPORT INFORMATION
  Report Type: 
  Country: None (occurrence: None)
  Receive Date: 20120228
  Receipt Date: 20120217
  Transmission Date: 20120608
  Serious: Yes (Other)
  Sender: FDA-Public Use
  Company Number: PHEH2012US004090

PATIENT
  Sex: Female

DRUGS (9)
  1. DIOVAN HCT [Suspect]
     Dosage: 2 DF, QD
     Route: 048
  2. XANAX [Concomitant]
  3. DIOVAN [Suspect]
     Dosage: 2 DF, QD
     Route: 048
  4. ACETAMINOPHEN [Concomitant]
  5. ANTIHYPERTENSIVE DRUGS [Suspect]
     Indication: HYPERTENSION
  6. CELEXA [Concomitant]
  7. DIOVAN [Suspect]
     Indication: HYPERTENSION
     Dosage: 1 DF, QD
     Route: 048
  8. DIOVAN HCT [Suspect]
     Indication: HYPERTENSION
     Dosage: 1 DF, QD
     Route: 048
  9. PROZAC [Concomitant]

REACTIONS (5)
  - DRUG PRESCRIBING ERROR [None]
  - CEREBROVASCULAR ACCIDENT [None]
  - BLOOD PRESSURE INCREASED [None]
  - BLOOD PRESSURE DIASTOLIC DECREASED [None]
  - MALAISE [None]
